FAERS Safety Report 21435544 (Version 2)
Quarter: 2022Q4

REPORT INFORMATION
  Report Type: Spontaneous
  Country: JP (occurrence: JP)
  Receive Date: 20221010
  Receipt Date: 20221102
  Transmission Date: 20230113
  Serious: Yes (Death, Other)
  Sender: FDA-Public Use
  Company Number: JP-MSD-M2022-42875

PATIENT
  Age: 89 Year
  Sex: Male

DRUGS (1)
  1. LAGEVRIO [Suspect]
     Active Substance: MOLNUPIRAVIR
     Indication: COVID-19 treatment
     Dosage: 800 MILLIGRAM, BID
     Route: 048
     Dates: start: 20220827, end: 20220829

REACTIONS (1)
  - Pneumonia [Fatal]

NARRATIVE: CASE EVENT DATE: 20220829
